FAERS Safety Report 4427642-1 (Version None)
Quarter: 2004Q3

REPORT INFORMATION
  Report Type: 
  Country: None (occurrence: None)
  Receive Date: 20040817
  Receipt Date: 20040813
  Transmission Date: 20050211
  Serious: Yes (Other)
  Sender: FDA-Public Use
  Company Number: JP-JNJFOC-20040804523

PATIENT
  Age: 57 Year
  Sex: Male

DRUGS (6)
  1. ITRACONAZOLE [Suspect]
     Route: 049
  2. ITRACONAZOLE [Suspect]
     Route: 049
  3. ITRACONAZOLE [Suspect]
     Route: 049
  4. AMPHOTERICIN B [Concomitant]
     Indication: SINUS POLYP
     Route: 042
  5. METHYLPREDNISOLONE SODIUM SUCCINATE [Concomitant]
     Indication: GRANULOMA
     Route: 042
  6. PREDNISOLONE [Concomitant]
     Indication: GRANULOMA
     Route: 049

REACTIONS (7)
  - CEREBRAL ASPERGILLOSIS [None]
  - COMPLEX PARTIAL SEIZURES [None]
  - EXOPHTHALMOS [None]
  - IIIRD NERVE PARALYSIS [None]
  - IVTH NERVE PARALYSIS [None]
  - OPTIC ATROPHY [None]
  - VITH NERVE PARALYSIS [None]
